FAERS Safety Report 18721382 (Version 7)
Quarter: 2021Q3

REPORT INFORMATION
  Report Type: Report from Study
  Country: BR (occurrence: BR)
  Receive Date: 20210109
  Receipt Date: 20210820
  Transmission Date: 20211014
  Serious: Yes (Other)
  Sender: FDA-Public Use
  Company Number: NVSC2020BR263856

PATIENT
  Age: 60 Year
  Sex: Female

DRUGS (7)
  1. COSENTYX [Suspect]
     Active Substance: SECUKINUMAB
     Indication: RHEUMATOID ARTHRITIS
     Dosage: UNK (NINETH APPLICATION)
     Route: 065
     Dates: start: 20201224
  2. COSENTYX [Suspect]
     Active Substance: SECUKINUMAB
     Dosage: 300 MG, QMO
     Route: 065
     Dates: start: 20200729
  3. COSENTYX [Suspect]
     Active Substance: SECUKINUMAB
     Dosage: UNK
     Route: 058
     Dates: start: 20210326
  4. COSENTYX [Suspect]
     Active Substance: SECUKINUMAB
     Indication: DERMATITIS PSORIASIFORM
     Dosage: 300 MG, UNKNOWN
     Route: 065
  5. COSENTYX [Suspect]
     Active Substance: SECUKINUMAB
     Dosage: UNK
     Route: 065
     Dates: start: 20210626
  6. COSENTYX [Suspect]
     Active Substance: SECUKINUMAB
     Indication: PSORIATIC ARTHROPATHY
     Dosage: 300 MG, QMO
     Route: 065
     Dates: start: 20200729
  7. COSENTYX [Suspect]
     Active Substance: SECUKINUMAB
     Dosage: UNK
     Route: 065
     Dates: start: 20210726

REACTIONS (24)
  - Cough [Unknown]
  - Myalgia [Not Recovered/Not Resolved]
  - Pain [Unknown]
  - Therapeutic product effect incomplete [Not Recovered/Not Resolved]
  - Arthralgia [Not Recovered/Not Resolved]
  - Dry throat [Unknown]
  - Injection site haemorrhage [Recovered/Resolved]
  - Injection site discolouration [Recovered/Resolved]
  - Psoriasis [Recovered/Resolved with Sequelae]
  - Psoriatic arthropathy [Not Recovered/Not Resolved]
  - Limb discomfort [Unknown]
  - Pain in extremity [Not Recovered/Not Resolved]
  - Ill-defined disorder [Unknown]
  - Back pain [Not Recovered/Not Resolved]
  - Product use in unapproved indication [Unknown]
  - Arthritis [Not Recovered/Not Resolved]
  - Alopecia [Recovered/Resolved]
  - Renal impairment [Unknown]
  - Alopecia [Recovered/Resolved]
  - Pain of skin [Not Recovered/Not Resolved]
  - Rheumatoid arthritis [Not Recovered/Not Resolved]
  - Head discomfort [Unknown]
  - Drug ineffective [Not Recovered/Not Resolved]
  - Somnolence [Not Recovered/Not Resolved]

NARRATIVE: CASE EVENT DATE: 202007
